FAERS Safety Report 15498885 (Version 1)
Quarter: 2018Q4

REPORT INFORMATION
  Report Type: Spontaneous
  Country: US (occurrence: US)
  Receive Date: 20181005
  Receipt Date: 20181005
  Transmission Date: 20190205
  Serious: Yes (Disabling)
  Sender: FDA-Public Use
  Company Number: None

PATIENT
  Age: 87 Year
  Sex: Female
  Weight: 51.75 kg

DRUGS (1)
  1. NEURONTIN [Suspect]
     Active Substance: GABAPENTIN
     Indication: POST HERPETIC NEURALGIA
     Dosage: ?          QUANTITY:1 CAPSULE(S);?
     Route: 048
     Dates: start: 20180214, end: 20180927

REACTIONS (7)
  - Pain in extremity [None]
  - Bedridden [None]
  - Condition aggravated [None]
  - Feeding disorder [None]
  - Dysphagia [None]
  - Therapy cessation [None]
  - Nausea [None]

NARRATIVE: CASE EVENT DATE: 20180907
